FAERS Safety Report 15234508 (Version 1)
Quarter: 2018Q3

REPORT INFORMATION
  Report Type: Spontaneous
  Country: DE (occurrence: DE)
  Receive Date: 20180803
  Receipt Date: 20180803
  Transmission Date: 20181010
  Serious: Yes (Congenital Anomaly, Other)
  Sender: FDA-Public Use
  Company Number: DE-CONCORDIA PHARMACEUTICALS INC.-E2B_00015263

PATIENT
  Age: 1 Day
  Sex: Female
  Weight: 1.47 kg

DRUGS (4)
  1. CARBOPLATIN. [Suspect]
     Active Substance: CARBOPLATIN
     Indication: OVARIAN CANCER
     Dosage: 6 CYCLES: GW 15, 18, 20+6, 24, 26+6, 30+6
     Route: 064
     Dates: start: 20170302, end: 20170621
  2. PREDNISOLONE. [Suspect]
     Active Substance: PREDNISOLONE
     Indication: CHEMOTHERAPY
     Dosage: 100 [MG/D ]/ 6 CYCLES (ON 6 DAYS), CUMULATIVE 540MG, INITIALLY 100MG/D
     Route: 064
     Dates: start: 20170302, end: 20170621
  3. PACLITAXEL. [Suspect]
     Active Substance: PACLITAXEL
     Indication: OVARIAN CANCER
     Dosage: 175 [MG/M? ]/ 6 CYCLES, FROM CYCLE 4 ONLY 80% OF INITIAL DOSAGE
     Route: 064
     Dates: start: 20170302, end: 20170621
  4. FOLSAURE [Concomitant]
     Active Substance: FOLIC ACID
     Indication: PROPHYLAXIS OF NEURAL TUBE DEFECT
     Route: 064

REACTIONS (3)
  - Polymicrogyria [Unknown]
  - Cerebral haemorrhage neonatal [Recovered/Resolved]
  - Small for dates baby [Recovering/Resolving]

NARRATIVE: CASE EVENT DATE: 20170718
